FAERS Safety Report 8788831 (Version 2)
Quarter: 2012Q4

REPORT INFORMATION
  Report Type: 
  Country: AU (occurrence: US)
  Receive Date: 20120916
  Receipt Date: 20121207
  Transmission Date: 20130627
  Serious: Yes (Congenital Anomaly)
  Sender: FDA-Public Use
  Company Number: US-009507513-1209USA003954

PATIENT

DRUGS (5)
  1. ISENTRESS [Suspect]
     Dosage: 800 mg daily
     Route: 064
  2. FUZEON [Suspect]
     Dosage: UNK
     Route: 064
  3. RETROVIR [Suspect]
     Dosage: UNK
     Route: 064
  4. COMBIVIR [Suspect]
     Dosage: UNK
     Route: 064
  5. PREZISTA [Suspect]
     Dosage: 1200 mg daily
     Route: 064

REACTIONS (2)
  - Plagiocephaly [Unknown]
  - Foetal exposure during pregnancy [Unknown]
